FAERS Safety Report 23262460 (Version 2)
Quarter: 2024Q1

REPORT INFORMATION
  Report Type: Report from Study
  Country: CA (occurrence: CA)
  Receive Date: 20231205
  Receipt Date: 20240127
  Transmission Date: 20240409
  Serious: Yes (Other)
  Sender: FDA-Public Use
  Company Number: CA-MYLANLABS-2021M1097500

PATIENT
  Sex: Female

DRUGS (3)
  1. HULIO [Suspect]
     Active Substance: ADALIMUMAB-FKJP
     Indication: Crohn^s disease
     Dosage: 40 MILLIGRAM, QW
     Route: 058
  2. HULIO [Suspect]
     Active Substance: ADALIMUMAB-FKJP
     Dosage: 40 MILLIGRAM, QW
     Route: 058
     Dates: start: 20220107
  3. HULIO [Suspect]
     Active Substance: ADALIMUMAB-FKJP
     Dosage: 40MG, WEEKLY
     Route: 058
     Dates: start: 20230107

REACTIONS (6)
  - Crohn^s disease [Unknown]
  - COVID-19 [Unknown]
  - Illness [Unknown]
  - Gastrointestinal disorder [Unknown]
  - Pyrexia [Recovered/Resolved]
  - Off label use [Unknown]
